FAERS Safety Report 5846060-2 (Version None)
Quarter: 2008Q3

REPORT INFORMATION
  Report Type: 
  Country: None (occurrence: None)
  Receive Date: 20080814
  Receipt Date: 20080807
  Transmission Date: 20090109
  Serious: Yes (Death)
  Sender: FDA-Public Use
  Company Number: US-PFIZER INC-2008050914

PATIENT
  Sex: Male
  Weight: 63.636 kg

DRUGS (15)
  1. DIFLUCAN [Suspect]
     Indication: NECROTISING FASCIITIS
     Route: 048
  2. DIFLUCAN [Suspect]
     Indication: OSTEOMYELITIS CHRONIC
  3. LIPITOR [Suspect]
  4. ACIPHEX [Concomitant]
     Route: 048
  5. AMITRIPTYLINE HCL [Concomitant]
     Dosage: TEXT:2 TABLETS
     Route: 048
     Dates: start: 20061113
  6. ACETYLSALICYLIC ACID SRT [Concomitant]
     Dosage: TEXT:2 TABLETS
     Route: 048
     Dates: start: 20061113
  7. CALCIUM [Concomitant]
     Route: 048
     Dates: start: 20070424
  8. CILOSTAZOL [Concomitant]
     Route: 048
     Dates: start: 20080411
  9. LANTUS [Concomitant]
     Route: 042
     Dates: start: 20061113
  10. LISINOPRIL [Concomitant]
     Route: 048
     Dates: start: 20061113
  11. NIFEDIPINE [Concomitant]
     Route: 048
     Dates: start: 20070613
  12. NOVOLOG [Concomitant]
     Route: 058
     Dates: start: 20080213
  13. PERCOCET [Concomitant]
     Route: 048
     Dates: start: 20080609
  14. TEMAZEPAM [Concomitant]
     Route: 048
     Dates: start: 20071211
  15. VITAMIN B COMPLEX CAP [Concomitant]
     Route: 048
     Dates: start: 20070424

REACTIONS (1)
  - MYOCARDIAL INFARCTION [None]
